FAERS Safety Report 8044409-6 (Version None)
Quarter: 2012Q1

REPORT INFORMATION
  Report Type: 
  Country: None (occurrence: None)
  Receive Date: 20120113
  Receipt Date: 20120103
  Transmission Date: 20120608
  Serious: Yes (Death)
  Sender: FDA-Public Use
  Company Number: US-SHIONOGI, INC-2012000051

PATIENT
  Age: 50 Year
  Sex: Female

DRUGS (4)
  1. COCAINE [Suspect]
     Dosage: UNK
  2. BUPROPION HYDROCHLORIDE [Suspect]
     Dosage: UNK
  3. BETA BLOCKING AGENTS [Suspect]
     Dosage: UNK
  4. FENOFIBRATE [Suspect]
     Dosage: UNK

REACTIONS (1)
  - COMPLETED SUICIDE [None]
